FAERS Safety Report 21692344 (Version 3)
Quarter: 2022Q4

REPORT INFORMATION
  Report Type: Spontaneous
  Country: GB (occurrence: GB)
  Receive Date: 20221207
  Receipt Date: 20221214
  Transmission Date: 20230112
  Serious: Yes (Life-Threatening, Hospitalization, Other)
  Sender: FDA-Public Use
  Company Number: GB-MLMSERVICE-20221125-3942530-1

PATIENT
  Age: 66 Year
  Sex: Female

DRUGS (4)
  1. VINCRISTINE SULFATE [Suspect]
     Active Substance: VINCRISTINE SULFATE
     Indication: Follicular lymphoma
     Dosage: 3 CYCLICAL (O-CVP) GIVEN DAYS 1-5
     Route: 042
  2. PREDNISOLONE [Suspect]
     Active Substance: PREDNISOLONE
     Indication: Follicular lymphoma
     Dosage: 3 CYCLICAL (O-CVP) GIVEN DAYS 1-5
     Route: 048
  3. OBINUTUZUMAB [Suspect]
     Active Substance: OBINUTUZUMAB
     Indication: Follicular lymphoma
     Dosage: CYCLE 1 (D1,8,15); CYCLE 2 AND 3 OBINUTUZUMAB GIVEN ONLY ON D1
     Route: 042
  4. CYCLOPHOSPHAMIDE [Suspect]
     Active Substance: CYCLOPHOSPHAMIDE
     Indication: Follicular lymphoma
     Dosage: 3 CYCLICAL (O-CVP) GIVEN DAYS 1-5
     Route: 042

REACTIONS (1)
  - Neutropenic sepsis [Recovered/Resolved]
